FAERS Safety Report 15256946 (Version 8)
Quarter: 2019Q3

REPORT INFORMATION
  Report Type: Spontaneous
  Country: US (occurrence: US)
  Receive Date: 20180808
  Receipt Date: 20190730
  Transmission Date: 20191004
  Serious: Yes (Congenital Anomaly, Other)
  Sender: FDA-Public Use
  Company Number: PHEH2018US032786

PATIENT
  Sex: Male

DRUGS (3)
  1. ZOFRAN [Suspect]
     Active Substance: ONDANSETRON HYDROCHLORIDE
     Indication: FOETAL EXPOSURE DURING PREGNANCY
     Route: 064
  2. ZOFRAN ODT [Suspect]
     Active Substance: ONDANSETRON HYDROCHLORIDE
     Indication: FOETAL EXPOSURE DURING PREGNANCY
     Route: 064
  3. ZOFRAN [Suspect]
     Active Substance: ONDANSETRON HYDROCHLORIDE
     Indication: FOETAL EXPOSURE DURING PREGNANCY
     Dosage: MOTHER DOSE: 08 MG, BID
     Route: 064

REACTIONS (26)
  - Patent ductus arteriosus [Unknown]
  - Atelectasis neonatal [Unknown]
  - Acidosis [Unknown]
  - Poor feeding infant [Unknown]
  - Oropharyngeal pain [Unknown]
  - Foetal exposure during pregnancy [Unknown]
  - Lethargy [Unknown]
  - Right ventricular hypertrophy [Unknown]
  - Pulmonary haemorrhage [Unknown]
  - Haematochezia [Unknown]
  - Bronchitis [Unknown]
  - Tricuspid valve incompetence [Unknown]
  - Left ventricular dysfunction [Unknown]
  - Shock [Unknown]
  - Neonatal respiratory distress [Unknown]
  - Coagulopathy [Unknown]
  - Upper respiratory tract infection [Unknown]
  - Cough [Unknown]
  - Pyrexia [Unknown]
  - Coarctation of the aorta [Unknown]
  - Left-to-right cardiac shunt [Unknown]
  - Otitis media acute [Unknown]
  - Mitral valve incompetence [Recovered/Resolved]
  - Sepsis neonatal [Unknown]
  - Cardiomegaly [Unknown]
  - Acute sinusitis [Unknown]
